FAERS Safety Report 16175279 (Version 8)
Quarter: 2019Q2

REPORT INFORMATION
  Report Type: Spontaneous
  Country: BR (occurrence: BR)
  Receive Date: 20190409
  Receipt Date: 20190610
  Transmission Date: 20190711
  Serious: Yes (Life-Threatening, Hospitalization, Other)
  Sender: FDA-Public Use
  Company Number: BR-JAZZ-2019-BR-004765

PATIENT
  Age: 38 Year
  Sex: Male

DRUGS (21)
  1. MATRICARIA RECUTITA EXTRACT [Concomitant]
     Indication: PRODUCT USED FOR UNKNOWN INDICATION
  2. DIPYRONE [Concomitant]
     Active Substance: DIPYRONE
     Indication: PYREXIA
  3. ONDANSETRON [Concomitant]
     Active Substance: ONDANSETRON
     Indication: PRODUCT USED FOR UNKNOWN INDICATION
  4. SODIUM CHLORIDE. [Concomitant]
     Active Substance: SODIUM CHLORIDE
     Indication: PRODUCT USED FOR UNKNOWN INDICATION
  5. AMPHOTERICIN B. [Concomitant]
     Active Substance: AMPHOTERICIN B
     Indication: PRODUCT USED FOR UNKNOWN INDICATION
  6. CALCIUM CARBONATE. [Concomitant]
     Active Substance: CALCIUM CARBONATE
     Indication: PRODUCT USED FOR UNKNOWN INDICATION
  7. CHLORPROMAZINE. [Concomitant]
     Active Substance: CHLORPROMAZINE
     Indication: NAUSEA
  8. DEXPANTENOL [Concomitant]
     Indication: INJURY
  9. LANETTE WAX [Concomitant]
     Indication: PRODUCT USED FOR UNKNOWN INDICATION
  10. METHYLPREDISOLONE [Concomitant]
     Active Substance: METHYLPREDNISOLONE
     Indication: PRODUCT USED FOR UNKNOWN INDICATION
  11. VITAMIN D3 [Concomitant]
     Active Substance: CHOLECALCIFEROL
     Indication: PRODUCT USED FOR UNKNOWN INDICATION
  12. DEFIBROTIDE [Suspect]
     Active Substance: DEFIBROTIDE (BOVINE)
     Indication: VENOOCCLUSIVE DISEASE
     Dosage: 2148 MG
     Route: 042
     Dates: start: 20190321, end: 20190411
  13. DIMENHYDRINATE;PYRIDOXINE [Concomitant]
     Active Substance: DIMENHYDRINATE\PYRIDOXINE
     Indication: NAUSEA
  14. FOLIC ACID. [Concomitant]
     Active Substance: FOLIC ACID
     Indication: PRODUCT USED FOR UNKNOWN INDICATION
  15. DIPYRONE [Concomitant]
     Active Substance: DIPYRONE
     Indication: PAIN
  16. DIMENHYDRINATE;PYRIDOXINE [Concomitant]
     Active Substance: DIMENHYDRINATE\PYRIDOXINE
     Indication: VOMITING
  17. PARACETAMOL [Concomitant]
     Active Substance: ACETAMINOPHEN
     Indication: PRODUCT USED FOR UNKNOWN INDICATION
  18. DAPSONE. [Concomitant]
     Active Substance: DAPSONE
     Indication: PRODUCT USED FOR UNKNOWN INDICATION
  19. HUMAN INSULIN [Concomitant]
     Active Substance: INSULIN HUMAN
     Indication: PRODUCT USED FOR UNKNOWN INDICATION
  20. DEXCHLORPHENIRAMINE [Concomitant]
     Active Substance: DEXCHLORPHENIRAMINE
     Indication: PRURITUS
  21. DOMPERIDONE [Concomitant]
     Active Substance: DOMPERIDONE
     Indication: PRODUCT USED FOR UNKNOWN INDICATION

REACTIONS (6)
  - Diarrhoea [Recovered/Resolved]
  - C-reactive protein increased [Unknown]
  - Cytomegalovirus infection [Recovered/Resolved]
  - Microangiopathy [Not Recovered/Not Resolved]
  - Pyrexia [Unknown]
  - Klebsiella bacteraemia [Recovered/Resolved]

NARRATIVE: CASE EVENT DATE: 20190326
